FAERS Safety Report 6244585-1 (Version None)
Quarter: 2009Q2

REPORT INFORMATION
  Report Type: 
  Country: None (occurrence: None)
  Receive Date: 20090625
  Receipt Date: 20090623
  Transmission Date: 20091009
  Serious: Yes (Other)
  Sender: FDA-Public Use
  Company Number: US-BAYER-200922966NA

PATIENT
  Age: 27 Year
  Sex: Female
  Weight: 59 kg

DRUGS (2)
  1. MIRENA [Suspect]
     Indication: CONTRACEPTION
     Route: 015
     Dates: start: 20080625
  2. MULTI-VITAMIN [Concomitant]
     Indication: BREAST FEEDING
     Dosage: 1 DAILY
     Route: 048

REACTIONS (2)
  - IUCD COMPLICATION [None]
  - IUD MIGRATION [None]
